FAERS Safety Report 8350729-8 (Version None)
Quarter: 2012Q2

REPORT INFORMATION
  Report Type: 
  Country: None (occurrence: None)
  Receive Date: 20120510
  Receipt Date: 20120504
  Transmission Date: 20120825
  Serious: Yes (Hospitalization)
  Sender: FDA-Public Use
  Company Number: US-GLAXOSMITHKLINE-A0937767A

PATIENT
  Age: 49 Year
  Sex: Female

DRUGS (8)
  1. LIPITOR [Concomitant]
  2. NEXIUM [Concomitant]
  3. FLEXERIL [Concomitant]
  4. ROPINIROLE [Concomitant]
  5. SYNTHROID [Concomitant]
  6. ATIVAN [Concomitant]
  7. AVANDIA [Suspect]
     Indication: DIABETES MELLITUS
     Dosage: 2MG PER DAY
     Route: 048
     Dates: start: 20071201, end: 20100101
  8. RESTORIL [Concomitant]

REACTIONS (2)
  - MYOCARDIAL INFARCTION [None]
  - MEMORY IMPAIRMENT [None]
